FAERS Safety Report 11347937 (Version 1)
Quarter: 2015Q3

REPORT INFORMATION
  Report Type: Spontaneous
  Country: US (occurrence: US)
  Receive Date: 20150803
  Receipt Date: 20150803
  Transmission Date: 20151125
  Serious: No
  Sender: FDA-Public Use
  Company Number: US-ELI_LILLY_AND_COMPANY-US201112003417

PATIENT
  Sex: Male

DRUGS (3)
  1. STRATTERA [Suspect]
     Active Substance: ATOMOXETINE HYDROCHLORIDE
     Indication: ATTENTION DEFICIT/HYPERACTIVITY DISORDER
     Dosage: 80 MG, QD
  2. STRATTERA [Suspect]
     Active Substance: ATOMOXETINE HYDROCHLORIDE
     Dosage: 40 MG, BID
  3. CAFFEINE. [Concomitant]
     Active Substance: CAFFEINE

REACTIONS (6)
  - Euphoric mood [Recovered/Resolved]
  - Nausea [Unknown]
  - Feeling jittery [Recovered/Resolved]
  - Wrong technique in product usage process [Unknown]
  - Erectile dysfunction [Not Recovered/Not Resolved]
  - Retching [Unknown]
